FAERS Safety Report 4305206-8 (Version None)
Quarter: 2004Q1

REPORT INFORMATION
  Report Type: 
  Country: None (occurrence: None)
  Receive Date: 20040226
  Receipt Date: 20040203
  Transmission Date: 20041129
  Serious: Yes (Death, Other)
  Sender: FDA-Public Use
  Company Number: WAES 0402USA00313

PATIENT
  Age: 63 Year
  Sex: Female

DRUGS (1)
  1. PEPCID [Suspect]
     Route: 042

REACTIONS (2)
  - DEATH [None]
  - HEPATIC ENCEPHALOPATHY [None]
